FAERS Safety Report 7189953-9 (Version None)
Quarter: 2010Q4

REPORT INFORMATION
  Report Type: 
  Country: None (occurrence: None)
  Receive Date: 20101223
  Receipt Date: 20101213
  Transmission Date: 20110411
  Serious: Yes (Other)
  Sender: FDA-Public Use
  Company Number: DE-JNJFOC-20101204460

PATIENT
  Sex: Male

DRUGS (1)
  1. HALDOL [Suspect]
     Indication: ANTIEMETIC SUPPORTIVE CARE
     Route: 058

REACTIONS (4)
  - ACCIDENTAL OVERDOSE [None]
  - INCORRECT ROUTE OF DRUG ADMINISTRATION [None]
  - PARKINSONISM [None]
  - POISONING [None]
